FAERS Safety Report 8942492 (Version 1)
Quarter: 2012Q4

REPORT INFORMATION
  Report Type: 
  Country: US (occurrence: US)
  Receive Date: 20121204
  Receipt Date: 20121204
  Transmission Date: 20130627
  Serious: Yes (Other)
  Sender: FDA-Public Use
  Company Number: US-BAYER-2012-125034

PATIENT
  Age: 58 Year
  Sex: Female
  Weight: 87 kg

DRUGS (2)
  1. RID 1-2-3 SYSTEM [Suspect]
     Indication: HEAD LICE
     Dosage: 1 DF, ONCE
     Route: 061
     Dates: start: 20121126, end: 20121126
  2. PROAIR HFA [Concomitant]

REACTIONS (1)
  - Asthma [Recovered/Resolved]
